FAERS Safety Report 9153520 (Version 1)
Quarter: 2013Q1

REPORT INFORMATION
  Report Type: Spontaneous
  Country: US (occurrence: None)
  Receive Date: 20130306
  Receipt Date: 20130306
  Transmission Date: 20140127
  Serious: Yes (Life-Threatening, Hospitalization)
  Sender: FDA-Public Use
  Company Number: None

PATIENT
  Age: 73 Year
  Sex: Male
  Weight: 99.34 kg

DRUGS (1)
  1. PRADAXA [Suspect]
     Indication: ATRIAL FIBRILLATION
     Dosage: 1 DOSE A FEW MONTHS, TWICE A DAY ORAL
     Route: 048

REACTIONS (4)
  - Haematoma [None]
  - Abasia [None]
  - Wound infection [None]
  - Renal failure acute [None]
